FAERS Safety Report 9994087 (Version 1)
Quarter: 2014Q1

REPORT INFORMATION
  Report Type: Other
  Country: BD (occurrence: BD)
  Receive Date: 20140310
  Receipt Date: 20140310
  Transmission Date: 20141002
  Serious: Yes (Other)
  Sender: FDA-Public Use
  Company Number: BD-US-EMD SERONO, INC.-7273926

PATIENT
  Sex: Female

DRUGS (3)
  1. METFORMIN [Suspect]
     Indication: POLYCYSTIC OVARIES
     Route: 048
  2. CLOMIPHENE CITRATE [Suspect]
     Indication: OVULATION INDUCTION
  3. CHORIONIC GONADOTROPHIN [Concomitant]
     Indication: OVULATION INDUCTION
     Route: 030

REACTIONS (2)
  - Abortion [Unknown]
  - Off label use [Unknown]
